FAERS Safety Report 4323405-6 (Version None)
Quarter: 2004Q1

REPORT INFORMATION
  Report Type: 
  Country: None (occurrence: None)
  Receive Date: 20040325
  Receipt Date: 20040305
  Transmission Date: 20041129
  Serious: Yes (Other)
  Sender: FDA-Public Use
  Company Number: JP-GLAXOSMITHKLINE-B0326261A

PATIENT
  Age: 79 Year
  Sex: Female
  Weight: 83 kg

DRUGS (13)
  1. RELENZA [Suspect]
     Indication: INFLUENZA
     Dosage: 10MG TWICE PER DAY
     Route: 055
     Dates: start: 20040213, end: 20040217
  2. LUVOX [Suspect]
     Indication: DEPRESSION
     Dosage: 25MG TWICE PER DAY
     Route: 048
     Dates: start: 20030725, end: 20040217
  3. BEHYD [Suspect]
     Indication: HYPERTENSION
     Dosage: 1UNIT PER DAY
     Route: 048
     Dates: start: 19950203, end: 20040217
  4. SIMVASTATIN [Concomitant]
     Indication: HYPERLIPIDAEMIA
     Dosage: 5MG PER DAY
     Route: 048
  5. GASTER [Concomitant]
     Indication: DRUG USE FOR UNKNOWN INDICATION
     Route: 048
  6. AZULENE SULFONATE SODIUM L-GLUTAMINE [Concomitant]
     Indication: GASTRITIS
     Dosage: 1G TWICE PER DAY
     Route: 048
     Dates: start: 19950203, end: 20040217
  7. MAGNESIUM OXIDE [Concomitant]
     Indication: DRUG USE FOR UNKNOWN INDICATION
     Route: 048
  8. SILECE [Concomitant]
     Indication: INSOMNIA
     Dosage: 2MG PER DAY
     Route: 048
  9. JUVELA NICOTINATE [Concomitant]
     Indication: HYPERLIPIDAEMIA
     Dosage: 2UNIT TWICE PER DAY
     Route: 048
     Dates: start: 19950210, end: 20040217
  10. ZYLORIC [Concomitant]
     Indication: HYPERURICAEMIA
     Dosage: 100MG TWICE PER DAY
     Route: 048
  11. RELIFEN [Concomitant]
     Indication: BACK PAIN
     Dosage: 2UNIT TWICE PER DAY
     Route: 048
  12. CLOPERASTINE FENDIZOATE [Concomitant]
     Indication: INFLUENZA
     Dosage: 6UNIT PER DAY
     Route: 048
     Dates: start: 20040212, end: 20040217
  13. LYSOZYME CHLORIDE [Concomitant]
     Indication: INFLUENZA
     Dosage: 270MG PER DAY
     Route: 048
     Dates: start: 20040212, end: 20040217

REACTIONS (5)
  - DELIRIUM [None]
  - DRUG INTERACTION [None]
  - DRUG LEVEL INCREASED [None]
  - HALLUCINATION [None]
  - HALLUCINATION, VISUAL [None]
